FAERS Safety Report 5029871-5 (Version None)
Quarter: 2006Q2

REPORT INFORMATION
  Report Type: 
  Country: None (occurrence: None)
  Receive Date: 20060620
  Receipt Date: 20060609
  Transmission Date: 20061013
  Serious: Yes (Hospitalization)
  Sender: FDA-Public Use
  Company Number: AU-ABBOTT-06P-008-0335811-00

PATIENT
  Sex: Female
  Weight: 98 kg

DRUGS (5)
  1. REDUCTIL 10MG [Suspect]
     Indication: OBESITY
     Route: 048
     Dates: start: 20030208, end: 20030319
  2. ESTRADIOL [Suspect]
     Indication: PALLOR
     Route: 062
     Dates: start: 20020415
  3. ESTRADIOL [Suspect]
     Indication: CYANOSIS
  4. FAMOTIDINE [Suspect]
     Indication: OESOPHAGEAL DISORDER
     Dates: start: 20011215
  5. OMEPRAZOLE [Concomitant]
     Indication: OESOPHAGEAL DISORDER

REACTIONS (4)
  - ANXIETY [None]
  - CHEST DISCOMFORT [None]
  - DYSPNOEA [None]
  - WEIGHT INCREASED [None]
